FAERS Safety Report 13603980 (Version 1)
Quarter: 2017Q2

REPORT INFORMATION
  Report Type: Spontaneous
  Country: US (occurrence: US)
  Receive Date: 20170602
  Receipt Date: 20170602
  Transmission Date: 20170830
  Serious: Yes (Other)
  Sender: FDA-Public Use
  Company Number: US-BAUSCH-BL-2017-017735

PATIENT
  Age: 76 Year
  Sex: Female

DRUGS (1)
  1. XENAZINE [Suspect]
     Active Substance: TETRABENAZINE
     Indication: HUNTINGTON^S DISEASE
     Route: 048
     Dates: start: 20170517, end: 20170526

REACTIONS (4)
  - Adverse event [Unknown]
  - Depression [Unknown]
  - Arrhythmia [Unknown]
  - Anger [Unknown]

NARRATIVE: CASE EVENT DATE: 20170526
